FAERS Safety Report 10331757 (Version 1)
Quarter: 2014Q3

REPORT INFORMATION
  Report Type: Spontaneous
  Country: IN (occurrence: IN)
  Receive Date: 20140722
  Receipt Date: 20140722
  Transmission Date: 20150326
  Serious: Yes (Life-Threatening, Hospitalization, Other)
  Sender: FDA-Public Use
  Company Number: IN-WATSON-2014-15553

PATIENT
  Age: 2 Year
  Sex: Male

DRUGS (1)
  1. DISULFIRAM. [Suspect]
     Active Substance: DISULFIRAM
     Indication: ACCIDENTAL EXPOSURE TO PRODUCT BY CHILD
     Dosage: 8-10 TABLETS
     Route: 048

REACTIONS (6)
  - Dystonia [Not Recovered/Not Resolved]
  - Hypotension [Unknown]
  - Metabolic acidosis [Unknown]
  - Accidental exposure to product by child [Not Recovered/Not Resolved]
  - Toxic encephalopathy [Not Recovered/Not Resolved]
  - Coma [Unknown]
